FAERS Safety Report 5989294-9 (Version None)
Quarter: 2008Q4

REPORT INFORMATION
  Report Type: 
  Country: None (occurrence: None)
  Receive Date: 20081210
  Receipt Date: 20081208
  Transmission Date: 20090506
  Serious: Yes (Hospitalization)
  Sender: FDA-Public Use
  Company Number: US-BRISTOL-MYERS SQUIBB COMPANY-14436000

PATIENT

DRUGS (1)
  1. ABILIFY [Suspect]

REACTIONS (1)
  - GASTROINTESTINAL HAEMORRHAGE [None]
